APPROVED DRUG PRODUCT: WELLBUTRIN
Active Ingredient: BUPROPION HYDROCHLORIDE
Strength: 100MG **Federal Register determination that product was not discontinued or withdrawn for safety or effectiveness reasons**
Dosage Form/Route: TABLET;ORAL
Application: N018644 | Product #003
Applicant: GLAXOSMITHKLINE
Approved: Dec 30, 1985 | RLD: Yes | RS: No | Type: DISCN